FAERS Safety Report 6863880-6 (Version None)
Quarter: 2010Q3

REPORT INFORMATION
  Report Type: 
  Country: None (occurrence: None)
  Receive Date: 20100721
  Receipt Date: 20080313
  Transmission Date: 20110219
  Serious: No
  Sender: FDA-Public Use
  Company Number: US-PFIZER INC-2008024248

PATIENT
  Sex: Female
  Weight: 66.2 kg

DRUGS (3)
  1. CHANTIX [Suspect]
     Indication: SMOKING CESSATION THERAPY
     Dates: start: 20080211
  2. METFORMIN [Concomitant]
     Indication: INSULIN RESISTANCE
  3. CRESTOR [Concomitant]
     Indication: BLOOD CHOLESTEROL INCREASED

REACTIONS (6)
  - BINGE EATING [None]
  - CONSTIPATION [None]
  - FLATULENCE [None]
  - NAUSEA [None]
  - SOMNOLENCE [None]
  - WEIGHT INCREASED [None]
